FAERS Safety Report 11371051 (Version 5)
Quarter: 2015Q3

REPORT INFORMATION
  Report Type: Spontaneous
  Country: US (occurrence: US)
  Receive Date: 20150812
  Receipt Date: 20150924
  Transmission Date: 20151125
  Serious: Yes (Hospitalization, Other)
  Sender: FDA-Public Use
  Company Number: US-GLAXOSMITHKLINE-US2015115046

PATIENT
  Age: 85 Year
  Sex: Female

DRUGS (4)
  1. ADVAIR DISKUS [Suspect]
     Active Substance: FLUTICASONE PROPIONATE\SALMETEROL XINAFOATE
     Indication: ASTHMA
     Dosage: 1 PUFF(S), QD
     Route: 055
  2. POTASSIUM [Concomitant]
     Active Substance: POTASSIUM
  3. LASIX [Concomitant]
     Active Substance: FUROSEMIDE
  4. ASPIRIN (BABY) [Concomitant]
     Active Substance: ASPIRIN

REACTIONS (19)
  - Stomatitis [Not Recovered/Not Resolved]
  - Oropharyngeal pain [Not Recovered/Not Resolved]
  - Malaise [Unknown]
  - Chronic respiratory failure [Unknown]
  - Sinus disorder [Not Recovered/Not Resolved]
  - Respiratory distress [Unknown]
  - Enterococcal bacteraemia [Unknown]
  - Dyspnoea [Not Recovered/Not Resolved]
  - Weight decreased [Unknown]
  - Product quality issue [Unknown]
  - Cardiac failure congestive [Unknown]
  - Headache [Unknown]
  - Pneumonia [Unknown]
  - Chest pain [Not Recovered/Not Resolved]
  - Drug hypersensitivity [Unknown]
  - Cough [Unknown]
  - Emergency care examination [Unknown]
  - Coronary artery bypass [Recovered/Resolved]
  - Chronic obstructive pulmonary disease [Unknown]

NARRATIVE: CASE EVENT DATE: 2009
